FAERS Safety Report 11832632 (Version 1)
Quarter: 2015Q4

REPORT INFORMATION
  Report Type: Report from Study
  Country: US (occurrence: US)
  Receive Date: 20151214
  Receipt Date: 20151214
  Transmission Date: 20160305
  Serious: Yes (Death)
  Sender: FDA-Public Use
  Company Number: US-UCBSA-2015040355

PATIENT
  Age: 77 Year
  Sex: Male

DRUGS (1)
  1. LACOSAMIDE [Suspect]
     Active Substance: LACOSAMIDE
     Indication: SEIZURE
     Dosage: UNK, 100 MG/4 A DAY

REACTIONS (3)
  - Brain neoplasm malignant [Fatal]
  - Pneumonia bacterial [Fatal]
  - Brain neoplasm [Fatal]

NARRATIVE: CASE EVENT DATE: 201508
